FAERS Safety Report 6217951-8 (Version None)
Quarter: 2009Q2

REPORT INFORMATION
  Report Type: 
  Country: None (occurrence: None)
  Receive Date: 20090608
  Receipt Date: 20090528
  Transmission Date: 20091009
  Serious: Yes (Other)
  Sender: FDA-Public Use
  Company Number: US-TEVA-196367USA

PATIENT
  Age: 24 Year
  Sex: Female
  Weight: 60.382 kg

DRUGS (2)
  1. PLAN B TABLET, LEVONORGESTREL, 0.75MG [Suspect]
     Indication: POST COITAL CONTRACEPTION
     Route: 048
     Dates: start: 20090506, end: 20090507
  2. PLAN B TABLET, LEVONORGESTREL, 0.75MG [Concomitant]

REACTIONS (7)
  - ABDOMINAL DISTENSION [None]
  - ABORTION SPONTANEOUS [None]
  - DRUG INEFFECTIVE [None]
  - ECTOPIC PREGNANCY [None]
  - PELVIC PAIN [None]
  - PREGNANCY AFTER POST COITAL CONTRACEPTION [None]
  - VAGINAL HAEMORRHAGE [None]
